FAERS Safety Report 6346958-5 (Version None)
Quarter: 2009Q3

REPORT INFORMATION
  Report Type: 
  Country: None (occurrence: None)
  Receive Date: 20090909
  Receipt Date: 20090909
  Transmission Date: 20100115
  Serious: Yes (Hospitalization)
  Sender: FDA-Public Use
  Company Number: None

PATIENT
  Age: 72 Year
  Sex: Female
  Weight: 62 kg

DRUGS (24)
  1. WARFARIN SODIUM [Suspect]
     Indication: ATRIAL FIBRILLATION
     Dosage: DOSE PER MD BASED ON INR DAILY PO PRIOR TO ADMISSION
     Route: 048
  2. DIGOXIN [Suspect]
     Indication: ATRIAL FIBRILLATION
     Dosage: 125 MCG DAILY PO PRIOR TO ADMISSION
     Route: 048
  3. EPOETIN ALFA [Concomitant]
  4. SIMVASTATIN [Concomitant]
  5. SODIUM BICARBONATE IN PLASTIC CONTAINER [Concomitant]
  6. ERGOCALCIFEROL [Concomitant]
  7. . [Concomitant]
  8. LATANOPROST [Concomitant]
  9. ALBUTEROL [Concomitant]
  10. POLYETHYLENE GLYCOL [Concomitant]
  11. ACETAMINOPHEN AND HYDROCODONE BITARTRATE [Concomitant]
  12. FERROUS SULFATE TAB [Concomitant]
  13. ALLOPURINOL [Concomitant]
  14. AMLODIPINE [Concomitant]
  15. ASPIRIN [Concomitant]
  16. CALCITRIOL [Concomitant]
  17. CARBAMAZEPINE [Concomitant]
  18. CYANOCOBALAMIN [Concomitant]
  19. DIGOXIN [Concomitant]
  20. VALSARTAN [Concomitant]
  21. FUROSEMIDE [Concomitant]
  22. FOLIC ACID [Concomitant]
  23. GLIPIZIDE [Concomitant]
  24. OMEPRAZOLE [Concomitant]

REACTIONS (10)
  - ANAEMIA [None]
  - ASTHENIA [None]
  - BRADYCARDIA [None]
  - CARDIOACTIVE DRUG LEVEL INCREASED [None]
  - DIALYSIS [None]
  - GASTROINTESTINAL DISORDER [None]
  - GASTROINTESTINAL HAEMORRHAGE [None]
  - HYPERKALAEMIA [None]
  - INTERNATIONAL NORMALISED RATIO INCREASED [None]
  - RENAL FAILURE [None]
